FAERS Safety Report 15979123 (Version 1)
Quarter: 2019Q1

REPORT INFORMATION
  Report Type: Report from Study
  Country: US (occurrence: US)
  Receive Date: 20190219
  Receipt Date: 20190219
  Transmission Date: 20190418
  Serious: Yes (Other)
  Sender: FDA-Public Use
  Company Number: US-SA-2018SA158369

PATIENT
  Age: 72 Year
  Sex: Female

DRUGS (1)
  1. INSULIN GLARGINE [Suspect]
     Active Substance: INSULIN GLARGINE
     Indication: DIABETES MELLITUS
     Dosage: 40 U, HS
     Route: 058
     Dates: start: 2003

REACTIONS (10)
  - Diabetic eye disease [Not Recovered/Not Resolved]
  - Nervousness [Unknown]
  - Paranoia [Unknown]
  - Feeling abnormal [Unknown]
  - Eye pain [Not Recovered/Not Resolved]
  - Blood glucose decreased [Unknown]
  - Stress [Unknown]
  - Anxiety [Unknown]
  - Visual impairment [Not Recovered/Not Resolved]
  - Eye oedema [Recovering/Resolving]

NARRATIVE: CASE EVENT DATE: 2003
